FAERS Safety Report 4555111-7 (Version None)
Quarter: 2004Q4

REPORT INFORMATION
  Report Type: 
  Country: None (occurrence: None)
  Receive Date: 20041217
  Receipt Date: 20040809
  Transmission Date: 20050328
  Serious: No
  Sender: FDA-Public Use
  Company Number: 2004-BP-05555BP

PATIENT
  Sex: Male

DRUGS (6)
  1. SPIRIVA [Suspect]
     Indication: EMPHYSEMA
     Dosage: 18 MCG (18 MCG), IH
     Route: 055
     Dates: start: 20040101
  2. FLOVENT [Concomitant]
  3. LEVOXYL [Concomitant]
  4. CAPTOPRIL [Concomitant]
  5. ATENOLOL [Concomitant]
  6. PAXIL [Concomitant]

REACTIONS (2)
  - HEADACHE [None]
  - POLLAKIURIA [None]
